FAERS Safety Report 5745316-1 (Version None)
Quarter: 2008Q2

REPORT INFORMATION
  Report Type: 
  Country: None (occurrence: None)
  Receive Date: 20080521
  Receipt Date: 20080509
  Transmission Date: 20081010
  Serious: Yes (Other)
  Sender: FDA-Public Use
  Company Number: CN-ROCHE-563794

PATIENT
  Sex: Female

DRUGS (2)
  1. CELLCEPT [Suspect]
     Route: 048
     Dates: start: 20070401
  2. CYCLOSPORINE [Concomitant]
     Route: 048
     Dates: start: 20070401

REACTIONS (3)
  - FISTULA REPAIR [None]
  - IMPAIRED HEALING [None]
  - INCISION SITE PAIN [None]
